FAERS Safety Report 8908684 (Version 1)
Quarter: 2012Q4

REPORT INFORMATION
  Report Type: 
  Country: US (occurrence: US)
  Receive Date: 20121113
  Receipt Date: 20121113
  Transmission Date: 20130627
  Serious: No
  Sender: FDA-Public Use
  Company Number: US-AMGEN-USASP2012009684

PATIENT
  Age: 56 Year
  Sex: Female
  Weight: 102.4 kg

DRUGS (16)
  1. ENBREL [Suspect]
     Indication: RHEUMATOID ARTHRITIS
     Dosage: 50 mg, qwk
     Route: 058
     Dates: start: 20111118
  2. XANAX [Concomitant]
     Dosage: 0.5 mg, UNK
  3. AMBIEN [Concomitant]
     Dosage: 5 mg, UNK
  4. METHOTREXATE [Concomitant]
     Dosage: 2.5 mg, UNK
  5. TRAMADOL HCL [Concomitant]
     Dosage: 50 mg, UNK
  6. NAPROXEN [Concomitant]
     Dosage: 500 mg, UNK
  7. BENAZEPRIL [Concomitant]
     Dosage: 40 mg, UNK
  8. SIMVASTATIN [Concomitant]
     Dosage: 20 mg, UNK
  9. METFORMIN [Concomitant]
     Dosage: 1000 mg, UNK
  10. FOLIC ACID [Concomitant]
     Dosage: 1 mg, UNK
  11. LAMICTAL [Concomitant]
     Dosage: 100 mg, UNK
  12. GLIPIZIDE ER [Concomitant]
     Dosage: 5 mg, UNK
  13. AMITRIPTYLINE [Concomitant]
     Dosage: 25 mg, UNK
  14. SEROQUEL [Concomitant]
     Dosage: 200 mg, UNK
  15. LANSOPRAZOLE [Concomitant]
     Dosage: 30 mg, UNK
  16. LEVOXYL [Concomitant]
     Dosage: 112 mug, UNK

REACTIONS (8)
  - Blood glucose fluctuation [Unknown]
  - Dysgeusia [Unknown]
  - Parosmia [Unknown]
  - Dysphonia [Unknown]
  - Injection site pain [Recovered/Resolved]
  - Injection site pruritus [Unknown]
  - Injection site haemorrhage [Recovered/Resolved]
  - Injection site erythema [Unknown]
